FAERS Safety Report 12197290 (Version 1)
Quarter: 2016Q1

REPORT INFORMATION
  Report Type: Spontaneous
  Country: US (occurrence: US)
  Receive Date: 20160321
  Receipt Date: 20160321
  Transmission Date: 20160526
  Serious: No
  Sender: FDA-Public Use
  Company Number: US-ASTRAZENECA-2016SE27769

PATIENT
  Sex: Female

DRUGS (1)
  1. SYMBICORT [Suspect]
     Active Substance: BUDESONIDE\FORMOTEROL FUMARATE DIHYDRATE
     Indication: NASOPHARYNGITIS
     Dosage: DOSE AND FREQUENCY WAS UNKNOWN
     Route: 055

REACTIONS (4)
  - Tongue disorder [Not Recovered/Not Resolved]
  - Product used for unknown indication [Unknown]
  - Candida infection [Not Recovered/Not Resolved]
  - Off label use [Unknown]
